FAERS Safety Report 7777006-8 (Version None)
Quarter: 2011Q3

REPORT INFORMATION
  Report Type: 
  Country: None (occurrence: None)
  Receive Date: 20110926
  Receipt Date: 20110926
  Transmission Date: 20111222
  Serious: No
  Sender: FDA-Public Use
  Company Number: None

PATIENT
  Age: 90 Year
  Sex: Male
  Weight: 65 kg

DRUGS (1)
  1. AMIODARONE HCL [Suspect]

REACTIONS (3)
  - AORTIC STENOSIS [None]
  - PULMONARY TOXICITY [None]
  - PLEURAL EFFUSION [None]
